FAERS Safety Report 12253466 (Version 2)
Quarter: 2016Q2

REPORT INFORMATION
  Report Type: Spontaneous
  Country: JP (occurrence: JP)
  Receive Date: 20160411
  Receipt Date: 20160420
  Transmission Date: 20160815
  Serious: Yes (Hospitalization, Other)
  Sender: FDA-Public Use
  Company Number: JP-PFIZER INC-2016200504

PATIENT
  Age: 44 Year
  Sex: Male

DRUGS (7)
  1. EFFEXOR [Suspect]
     Active Substance: VENLAFAXINE HYDROCHLORIDE
     Indication: DEPRESSION
     Dosage: 37.5 MG, DAILY
     Route: 048
     Dates: start: 20160201
  2. LENDORMIN [Concomitant]
     Active Substance: BROTIZOLAM
     Dosage: UNK
  3. SULPIRIDE [Concomitant]
     Active Substance: SULPIRIDE
     Dosage: UNK
  4. EFFEXOR [Suspect]
     Active Substance: VENLAFAXINE HYDROCHLORIDE
     Dosage: 75 MG, DAILY
     Route: 048
     Dates: start: 20160208
  5. PAXIL [Concomitant]
     Active Substance: PAROXETINE HYDROCHLORIDE
     Indication: DEPRESSION
     Dosage: 40 MG, UNK
     Route: 048
  6. PAXIL [Concomitant]
     Active Substance: PAROXETINE HYDROCHLORIDE
     Dosage: 30 MG, UNK
     Dates: start: 20160208
  7. DESYREL [Concomitant]
     Active Substance: TRAZODONE HYDROCHLORIDE
     Dosage: UNK

REACTIONS (3)
  - Language disorder [Unknown]
  - Cerebral haemorrhage [Unknown]
  - Hemiplegia [Recovering/Resolving]

NARRATIVE: CASE EVENT DATE: 20160221
